FAERS Safety Report 12351200 (Version 1)
Quarter: 2016Q2

REPORT INFORMATION
  Report Type: Spontaneous
  Country: US (occurrence: None)
  Receive Date: 20160509
  Receipt Date: 20160509
  Transmission Date: 20160815
  Serious: Yes (Hospitalization)
  Sender: FDA-Public Use
  Company Number: None

PATIENT
  Age: 67 Year
  Sex: Female
  Weight: 67.6 kg

DRUGS (2)
  1. CARBAMAZEPINE XR, 200MG [Suspect]
     Active Substance: CARBAMAZEPINE
     Indication: TRIGEMINAL NEURALGIA
     Route: 048
  2. CARBAMAZEPINE XR, 200MG [Suspect]
     Active Substance: CARBAMAZEPINE
     Indication: NEURALGIA
     Route: 048

REACTIONS (1)
  - Pancreatitis [None]

NARRATIVE: CASE EVENT DATE: 20160407
